FAERS Safety Report 4970545-4 (Version None)
Quarter: 2006Q2

REPORT INFORMATION
  Report Type: 
  Country: None (occurrence: None)
  Receive Date: 20060412
  Receipt Date: 20050921
  Transmission Date: 20061013
  Serious: Yes (Disabling, Other)
  Sender: FDA-Public Use
  Company Number: US-MERCK-0509USA03188

PATIENT
  Age: 51 Year
  Sex: Female
  Weight: 55 kg

DRUGS (2)
  1. VIOXX [Suspect]
     Indication: NECK PAIN
     Route: 048
     Dates: start: 20000101, end: 20041101
  2. EXCEDRIN (ACETAMINOPHEN (+) CAFFEINE) [Concomitant]
     Route: 065

REACTIONS (13)
  - ANXIETY [None]
  - BURSITIS [None]
  - CARPAL TUNNEL SYNDROME [None]
  - CEREBROVASCULAR ACCIDENT [None]
  - DIVERTICULITIS [None]
  - FACE INJURY [None]
  - FALL [None]
  - HYPERLIPIDAEMIA [None]
  - INFLAMMATORY BOWEL DISEASE [None]
  - INSOMNIA [None]
  - OPTIC DISC DISORDER [None]
  - RETINAL DISORDER [None]
  - TRANSIENT ISCHAEMIC ATTACK [None]
